FAERS Safety Report 12270294 (Version 3)
Quarter: 2016Q3

REPORT INFORMATION
  Report Type: Report from Study
  Country: DE (occurrence: DE)
  Receive Date: 20160415
  Receipt Date: 20160817
  Transmission Date: 20161109
  Serious: Yes (Other)
  Sender: FDA-Public Use
  Company Number: PHHY2016DE049922

PATIENT
  Sex: Female
  Weight: 56 kg

DRUGS (6)
  1. AFINITOR [Suspect]
     Active Substance: EVEROLIMUS
     Dosage: 10 MG, QD
     Route: 048
     Dates: start: 20150616, end: 20150714
  2. AFINITOR [Suspect]
     Active Substance: EVEROLIMUS
     Dosage: 5 MG, QD
     Route: 048
     Dates: start: 20150715, end: 20160302
  3. AFINITOR [Suspect]
     Active Substance: EVEROLIMUS
     Dosage: 5 MG, QD
     Route: 048
     Dates: start: 20150413, end: 20150610
  4. AFINITOR [Suspect]
     Active Substance: EVEROLIMUS
     Indication: BREAST CANCER METASTATIC
     Dosage: 10 MG, QD
     Route: 048
     Dates: start: 20150116, end: 20150324
  5. ZOLEDRONATE [Concomitant]
     Active Substance: ZOLEDRONIC ACID
     Indication: METASTASES TO BONE
     Dosage: 4 MG, UNK
     Route: 065
     Dates: start: 201211
  6. EXEMESTANE. [Concomitant]
     Active Substance: EXEMESTANE
     Indication: BREAST CANCER METASTATIC
     Dosage: 25 MG, QD
     Route: 048
     Dates: start: 20150116, end: 20160330

REACTIONS (8)
  - Ventricular hypokinesia [Unknown]
  - Coronary artery occlusion [Not Recovered/Not Resolved]
  - Coronary artery thrombosis [Not Recovered/Not Resolved]
  - Ventricular dysfunction [Unknown]
  - Electrocardiogram T wave inversion [Unknown]
  - Cardiomyopathy [Not Recovered/Not Resolved]
  - QRS axis abnormal [Unknown]
  - Ejection fraction decreased [Unknown]

NARRATIVE: CASE EVENT DATE: 20160405
